FAERS Safety Report 6537111-0 (Version None)
Quarter: 2010Q1

REPORT INFORMATION
  Report Type: 
  Country: None (occurrence: None)
  Receive Date: 20100114
  Receipt Date: 20100107
  Transmission Date: 20100710
  Serious: Yes (Hospitalization)
  Sender: FDA-Public Use
  Company Number: AR-JNJFOC-20091207507

PATIENT
  Sex: Female
  Weight: 83 kg

DRUGS (8)
  1. GOLIMUMAB [Suspect]
     Route: 058
  2. GOLIMUMAB [Suspect]
     Indication: RHEUMATOID ARTHRITIS
     Route: 058
  3. PLACEBO [Suspect]
     Indication: RHEUMATOID ARTHRITIS
     Route: 048
  4. METICORTEN [Concomitant]
     Route: 048
  5. ENALAPRIL [Concomitant]
     Route: 048
  6. PREDNISONE [Concomitant]
     Route: 048
  7. DICLOFENAC SODIUM [Concomitant]
     Route: 048
  8. BILETAN FORTE [Concomitant]
     Route: 048

REACTIONS (1)
  - HERPES ZOSTER [None]
